FAERS Safety Report 26111950 (Version 1)
Quarter: 2025Q4

REPORT INFORMATION
  Report Type: Spontaneous
  Country: US (occurrence: US)
  Receive Date: 20251202
  Receipt Date: 20251202
  Transmission Date: 20260118
  Serious: Yes (Other)
  Sender: ROCHE
  Company Number: US-ROCHE-10000446403

PATIENT
  Sex: Male

DRUGS (2)
  1. XOLAIR [Suspect]
     Active Substance: OMALIZUMAB
     Indication: Adverse food reaction
     Route: 058
     Dates: start: 202507
  2. MEASLES VIRUS VACCINE, LIVE [Suspect]
     Active Substance: MEASLES VIRUS STRAIN ENDERS^ ATTENUATED EDMONSTON LIVE ANTIGEN
     Indication: Product used for unknown indication
     Route: 065

REACTIONS (4)
  - Anaphylactic reaction [Unknown]
  - Headache [Unknown]
  - Fatigue [Unknown]
  - Influenza like illness [Unknown]
